FAERS Safety Report 8350733-X (Version None)
Quarter: 2012Q2

REPORT INFORMATION
  Report Type: 
  Country: None (occurrence: None)
  Receive Date: 20120510
  Receipt Date: 20120501
  Transmission Date: 20120825
  Serious: Yes (Congenital Anomaly)
  Sender: FDA-Public Use
  Company Number: US-GLAXOSMITHKLINE-A0950678A

PATIENT
  Sex: Male
  Weight: 2.8 kg

DRUGS (1)
  1. PAXIL [Suspect]
     Indication: PRODUCT USED FOR UNKNOWN INDICATION
     Dosage: 40MG PER DAY
     Route: 064

REACTIONS (4)
  - HYPERTROPHIC CARDIOMYOPATHY [None]
  - PULMONARY ARTERY STENOSIS CONGENITAL [None]
  - HYPERTELORISM OF ORBIT [None]
  - DYSMORPHISM [None]
